FAERS Safety Report 6968719-6 (Version None)
Quarter: 2010Q3

REPORT INFORMATION
  Report Type: 
  Country: None (occurrence: None)
  Receive Date: 20100907
  Receipt Date: 20100831
  Transmission Date: 20110219
  Serious: Yes (Hospitalization)
  Sender: FDA-Public Use
  Company Number: US-MERCK-1009USA00039

PATIENT
  Age: 76 Year
  Sex: Female

DRUGS (4)
  1. JANUVIA [Suspect]
     Indication: DIABETES MELLITUS
     Route: 048
     Dates: start: 20100721
  2. GLUCOPHAGE [Concomitant]
     Route: 065
  3. LISINOPRIL [Concomitant]
     Route: 048
  4. METFORMIN [Concomitant]
     Route: 065

REACTIONS (4)
  - ADVERSE EVENT [None]
  - DIZZINESS [None]
  - DYSPNOEA [None]
  - LOSS OF CONSCIOUSNESS [None]
